FAERS Safety Report 8923951 (Version 1)
Quarter: 2012Q4

REPORT INFORMATION
  Report Type: 
  Country: US (occurrence: US)
  Receive Date: 20121127
  Receipt Date: 20121127
  Transmission Date: 20130627
  Serious: Yes (Disabling)
  Sender: FDA-Public Use
  Company Number: US-RANBAXY-2012RR-62559

PATIENT
  Sex: Female

DRUGS (12)
  1. TRAMADOL [Suspect]
     Indication: PRODUCT USED FOR UNKNOWN INDICATION
     Dosage: UNK
     Route: 065
  2. GABAPENTIN [Suspect]
     Indication: FACIAL PAIN
     Dosage: UNK
     Route: 065
  3. GABAPENTIN [Suspect]
     Indication: NECK PAIN
  4. GABAPENTIN [Suspect]
     Indication: EAR PAIN
  5. GABAPENTIN [Suspect]
     Indication: HYPOAESTHESIA
  6. TRICOR [Suspect]
     Indication: HYPERCHOLESTEROLAEMIA
     Dosage: 145 mg (1 Tablet)
     Route: 065
  7. TRICOR [Suspect]
     Indication: HYPERTRIGLYCERIDAEMIA
  8. LIPITOR [Suspect]
     Indication: HYPERCHOLESTEROLAEMIA
     Dosage: 40 mg (1 Tablet)
     Route: 065
  9. LIPITOR [Suspect]
     Indication: HYPERTRIGLYCERIDAEMIA
  10. HYDROCHLOROTHIAZIDE [Concomitant]
     Indication: PRODUCT USED FOR UNKNOWN INDICATION
     Dosage: 25 mg
     Route: 065
  11. AMLODIPINE BESYLATE [Concomitant]
     Indication: PRODUCT USED FOR UNKNOWN INDICATION
     Dosage: 5 mg/day
     Route: 065
  12. LISINOPRIL [Concomitant]
     Indication: PRODUCT USED FOR UNKNOWN INDICATION
     Dosage: 10 mg/day
     Route: 065

REACTIONS (10)
  - Hypertension [Unknown]
  - Stress at work [Unknown]
  - Impaired work ability [Unknown]
  - Headache [Unknown]
  - Musculoskeletal pain [Unknown]
  - Facial pain [Unknown]
  - Neck pain [Unknown]
  - Ear pain [Unknown]
  - Hypoaesthesia [Unknown]
  - Somnolence [Unknown]
